FAERS Safety Report 10967560 (Version 1)
Quarter: 2015Q1

REPORT INFORMATION
  Report Type: Spontaneous
  Country: US (occurrence: None)
  Receive Date: 20150226
  Receipt Date: 20150226
  Transmission Date: 20150721
  Serious: No
  Sender: FDA-Public Use
  Company Number: TPA2009A01627

PATIENT
  Age: 90 Year
  Sex: Female

DRUGS (1)
  1. ULORIC [Suspect]
     Active Substance: FEBUXOSTAT
     Indication: PRODUCT USED FOR UNKNOWN INDICATION
     Dosage: INTERMITTENT
     Route: 048
     Dates: start: 2009, end: 2009

REACTIONS (1)
  - Urine output increased [None]

NARRATIVE: CASE EVENT DATE: 2009
